FAERS Safety Report 4854196-8 (Version None)
Quarter: 2005Q4

REPORT INFORMATION
  Report Type: 
  Country: None (occurrence: None)
  Receive Date: 20051213
  Receipt Date: 20051130
  Transmission Date: 20060501
  Serious: Yes (Other)
  Sender: FDA-Public Use
  Company Number: 2005163480

PATIENT
  Age: 83 Year
  Sex: Male
  Weight: 87.5442 kg

DRUGS (2)
  1. LIPITOR [Suspect]
     Indication: BLOOD CHOLESTEROL
     Dosage: (10 MG,)
  2. TAMSULOSIN HCL [Concomitant]

REACTIONS (5)
  - ASTHENIA [None]
  - FALL [None]
  - FEMUR FRACTURE [None]
  - GLUCOSE TOLERANCE IMPAIRED [None]
  - THERAPEUTIC RESPONSE DECREASED [None]
